FAERS Safety Report 15053435 (Version 4)
Quarter: 2019Q2

REPORT INFORMATION
  Report Type: Spontaneous
  Country: IT (occurrence: IT)
  Receive Date: 20180622
  Receipt Date: 20190510
  Transmission Date: 20190711
  Serious: Yes (Hospitalization, Other)
  Sender: FDA-Public Use
  Company Number: IT-MYLANLABS-2018M1042572

PATIENT
  Age: 56 Year
  Sex: Female

DRUGS (6)
  1. ZOLEDRONIC ACID [Suspect]
     Active Substance: ZOLEDRONIC ACID
     Indication: PLASMA CELL MYELOMA
  2. PAMIDRONATE [Suspect]
     Active Substance: PAMIDRONATE DISODIUM
     Indication: OSTEOPOROSIS
     Dosage: 90 MG, MONTHLY (INFUSION, FOR THE FIRST 2 YEARS AFTER TRANSPLANT)
     Route: 042
  3. PREDNISONE. [Concomitant]
     Active Substance: PREDNISONE
     Indication: PRODUCT USED FOR UNKNOWN INDICATION
     Dosage: 6 MG, DAILY (REPLACEMENT DOSE)
     Route: 065
  4. PREDNISONE. [Concomitant]
     Active Substance: PREDNISONE
     Dosage: 60 MG, DAILY (INITIALLY FOLLOWED BY GRADUAL TAPERING)
  5. ZOLEDRONIC ACID [Suspect]
     Active Substance: ZOLEDRONIC ACID
     Indication: OSTEOPOROSIS
     Dosage: 4 MILLIGRAM, MONTHLY (INFUSIONS, FOR 4 YEARS)
     Route: 041
     Dates: end: 200604
  6. PAMIDRONATE [Suspect]
     Active Substance: PAMIDRONATE DISODIUM
     Dosage: 90 MILLIGRAM, MONTHLY(INFUSION, FOR THE FIRST 2 YEARS AFTER TRANSPLANT)
     Route: 041

REACTIONS (10)
  - Callus formation delayed [Unknown]
  - Blood creatinine increased [Unknown]
  - Internal fixation of fracture [Unknown]
  - Arthralgia [Unknown]
  - Femur fracture [Not Recovered/Not Resolved]
  - Impaired healing [Unknown]
  - Fracture nonunion [Unknown]
  - Secondary adrenocortical insufficiency [Unknown]
  - Osteonecrosis of jaw [Unknown]
  - Multiple fractures [Unknown]

NARRATIVE: CASE EVENT DATE: 200704
